FAERS Safety Report 5152319-7 (Version None)
Quarter: 2006Q4

REPORT INFORMATION
  Report Type: 
  Country: None (occurrence: None)
  Receive Date: 20061116
  Receipt Date: 20060307
  Transmission Date: 20070319
  Serious: Yes (Death, Hospitalization)
  Sender: FDA-Public Use
  Company Number: NL-ABBOTT-06P-114-0327303-03

PATIENT
  Sex: Female
  Weight: 74 kg

DRUGS (26)
  1. HUMIRA [Suspect]
     Indication: RHEUMATOID ARTHRITIS
     Route: 058
     Dates: start: 20040505, end: 20051019
  2. LEFLUNOMIDE [Concomitant]
     Indication: RHEUMATOID ARTHRITIS
     Dates: start: 20021029, end: 20060504
  3. ALFACALCIDOL [Concomitant]
     Indication: OSTEOPOROSIS
     Dates: start: 20021001, end: 20060504
  4. CALCIUM SANDOZ [Concomitant]
     Indication: OSTEOPOROSIS
     Dates: start: 20021001
  5. LISINOPRIL [Concomitant]
     Indication: HYPERTENSION
     Dates: start: 19970225
  6. ACETAMINOPHEN [Concomitant]
     Indication: RHEUMATOID ARTHRITIS
     Dates: start: 20030101, end: 20060504
  7. CODEINE [Concomitant]
     Indication: COUGH
     Dates: start: 20020101, end: 20060504
  8. OMEPRAZOLE [Concomitant]
     Indication: GASTRIC DISORDER
     Dates: start: 19970901, end: 20060504
  9. B-KOMPLEX ^LECIVA^ [Concomitant]
     Indication: RHEUMATOID ARTHRITIS
     Dates: start: 19890104, end: 20060504
  10. FUROSEMIDE [Concomitant]
     Indication: HYPERTENSION
     Dates: start: 19890104, end: 20060504
  11. ACTRAPID [Concomitant]
     Indication: DIABETES MELLITUS
     Dates: start: 20030610, end: 20060504
  12. ISOPHANE INSULIN [Concomitant]
     Indication: DIABETES MELLITUS
     Dates: start: 20030610, end: 20060504
  13. PAMIDRONATE DISODIUM [Concomitant]
     Indication: OSTEOPOROSIS
     Dates: start: 20021001, end: 20060504
  14. DICLOFENAC SODIUM [Concomitant]
     Indication: RHEUMATOID ARTHRITIS
     Dates: start: 20030101, end: 20060504
  15. AMLODIPINE [Concomitant]
     Indication: HYPERTENSION
     Dates: start: 20040101
  16. SOTALOL HYDROCHLORIDE [Concomitant]
     Indication: HYPERTENSION
     Dates: start: 20050101, end: 20060504
  17. ACENOCOUMAROL [Concomitant]
     Indication: ANTICOAGULANT THERAPY
     Dates: start: 20050101
  18. COMMERCIAL HUMIRA [Concomitant]
     Indication: RHEUMATOID ARTHRITIS
     Route: 058
     Dates: start: 20040225
  19. CLARITHROMYCIN [Concomitant]
     Indication: OSTEOMYELITIS
     Dates: end: 20060504
  20. LORAZEPAM [Concomitant]
     Indication: SLEEP DISORDER
     Dates: end: 20060504
  21. LORAZEPAM [Concomitant]
     Indication: PROPHYLAXIS
  22. TEMAZEPAM [Concomitant]
     Indication: SLEEP DISORDER
     Dates: end: 20060504
  23. TEMAZEPAM [Concomitant]
     Indication: PROPHYLAXIS
  24. ZOCOR [Concomitant]
     Indication: DRUG USE FOR UNKNOWN INDICATION
     Dates: start: 20060502, end: 20060504
  25. AMLODIPINE BESYLATE [Concomitant]
     Indication: HYPERTENSION
     Dates: start: 20040101, end: 20060504
  26. ENOXAPARIN SODIUM [Concomitant]
     Indication: THROMBOSIS PROPHYLAXIS
     Dates: end: 20060504

REACTIONS (2)
  - GASTROINTESTINAL HAEMORRHAGE [None]
  - OSTEOMYELITIS [None]
